FAERS Safety Report 9051409 (Version 1)
Quarter: 2013Q1

REPORT INFORMATION
  Report Type: Spontaneous
  Country: US (occurrence: US)
  Receive Date: 20130206
  Receipt Date: 20130206
  Transmission Date: 20140127
  Serious: No
  Sender: FDA-Public Use
  Company Number: US-ALLERGAN-1206127US

PATIENT
  Sex: Female

DRUGS (2)
  1. RESTASIS [Suspect]
     Indication: DRY EYE
     Dosage: 2 GTT, BID
     Route: 047
  2. MOTRIN [Suspect]
     Indication: PAIN
     Dosage: 600 MG, UNK
     Route: 048

REACTIONS (8)
  - Photopsia [Recovered/Resolved]
  - Malaise [Recovered/Resolved]
  - Sinus headache [Recovered/Resolved]
  - Facial pain [Recovered/Resolved]
  - Sensory disturbance [Recovered/Resolved]
  - Ear discomfort [Recovered/Resolved]
  - Headache [Recovered/Resolved]
  - Dizziness [Recovered/Resolved]
